FAERS Safety Report 5108317-2 (Version None)
Quarter: 2006Q3

REPORT INFORMATION
  Report Type: 
  Country: None (occurrence: None)
  Receive Date: 20060914
  Receipt Date: 20060914
  Transmission Date: 20061208
  Serious: Yes (Hospitalization)
  Sender: FDA-Public Use
  Company Number: None

PATIENT
  Age: 58 Year
  Sex: Male

DRUGS (15)
  1. BICALUTAMIDE [Suspect]
     Indication: PROSTATE CANCER
     Dates: start: 20060619, end: 20060717
  2. GOSERELIN 10.8 MG SQ Q3M [Suspect]
     Indication: PROSTATE CANCER
     Dates: start: 20060619, end: 20060717
  3. SEREVENT [Concomitant]
  4. . [Concomitant]
  5. ALBUTEROL SULFATE AND IPRATROPIUM BROMIDE [Concomitant]
  6. BICALUTAMIDE [Concomitant]
  7. FELODIPINE [Concomitant]
  8. FERROUS SULFATE TAB [Concomitant]
  9. FUROSEMIDE [Concomitant]
  10. IPRATROPIUM BROMIDE [Concomitant]
  11. ATROVENT [Concomitant]
  12. COMBIVENT ISOSORBIDE MONONITRATE [Concomitant]
  13. . [Concomitant]
  14. LACTULOSE [Concomitant]
  15. ADVAIR DISKUS 100/50 [Concomitant]

REACTIONS (1)
  - SYNCOPE [None]
